FAERS Safety Report 9838250 (Version 1)
Quarter: 2013Q4

REPORT INFORMATION
  Report Type: Spontaneous
  Country: US (occurrence: None)
  Receive Date: 20131205
  Receipt Date: 20131205
  Transmission Date: 20140711
  Serious: Yes (Other)
  Sender: FDA-Public Use
  Company Number: 163-POMAL-13081269

PATIENT
  Age: 73 Year
  Sex: Female

DRUGS (2)
  1. POMALYST (POMALIDOMIDE) (4 MILLIGRAM, CAPSULES) [Suspect]
     Indication: PLASMA CELL MYELOMA
     Dosage: 4 MG, 21 IN 28 D, PO
     Route: 048
     Dates: start: 201307
  2. DEXAMETHASONE (SEXAMETHASONE) [Concomitant]

REACTIONS (7)
  - Balance disorder [None]
  - Influenza like illness [None]
  - Tremor [None]
  - Fatigue [None]
  - Asthenia [None]
  - Insomnia [None]
  - Laboratory test abnormal [None]
